FAERS Safety Report 9072361 (Version 1)
Quarter: 2013Q1

REPORT INFORMATION
  Report Type: Spontaneous
  Country: US (occurrence: US)
  Receive Date: 20130206
  Receipt Date: 20130206
  Transmission Date: 20140127
  Serious: No
  Sender: FDA-Public Use
  Company Number: US-ALLERGAN-1217501US

PATIENT
  Sex: Female

DRUGS (6)
  1. RESTASIS? [Suspect]
     Indication: DRY EYE
     Dosage: 2 GTT, QHS
     Route: 047
  2. RESTASIS? [Suspect]
     Dosage: 2 GTT, QHS
     Route: 047
  3. TRAVATAN Z [Concomitant]
     Indication: PRODUCT USED FOR UNKNOWN INDICATION
     Dosage: UNK UNK, QHS
     Route: 047
  4. COMBIGAN[R] [Concomitant]
     Indication: PRODUCT USED FOR UNKNOWN INDICATION
     Route: 047
  5. ASTELIN                            /00085801/ [Concomitant]
     Indication: HYPERSENSITIVITY
  6. NASALCROM [Concomitant]
     Indication: HYPERSENSITIVITY

REACTIONS (2)
  - Lacrimation increased [Not Recovered/Not Resolved]
  - Drug ineffective [Unknown]
